FAERS Safety Report 6105741-6 (Version None)
Quarter: 2009Q1

REPORT INFORMATION
  Report Type: 
  Country: None (occurrence: None)
  Receive Date: 20090306
  Receipt Date: 20090303
  Transmission Date: 20090719
  Serious: Yes (Other)
  Sender: FDA-Public Use
  Company Number: US-JNJFOC-20090301145

PATIENT
  Age: 69 Year
  Sex: Female
  Weight: 68.49 kg

DRUGS (4)
  1. EXTRA STRENGTH TYLENOL [Suspect]
  2. EXTRA STRENGTH TYLENOL [Suspect]
     Indication: PAIN
     Dosage: 500MG, EVERY 3-4 HOURS
  3. AMOXICILLIN [Concomitant]
     Indication: LYME DISEASE
  4. ARMOUR [Concomitant]
     Indication: HYPOTHYROIDISM

REACTIONS (4)
  - ASTHENIA [None]
  - BLOOD PRESSURE INCREASED [None]
  - INAPPROPRIATE SCHEDULE OF DRUG ADMINISTRATION [None]
  - MOBILITY DECREASED [None]
